FAERS Safety Report 9604407 (Version 1)
Quarter: 2013Q4

REPORT INFORMATION
  Report Type: Spontaneous
  Country: GB (occurrence: GB)
  Receive Date: 20131008
  Receipt Date: 20131008
  Transmission Date: 20140711
  Serious: Yes (Other)
  Sender: FDA-Public Use
  Company Number: GB-TEVA-435548ISR

PATIENT
  Sex: Male

DRUGS (5)
  1. MORPHINE [Suspect]
     Indication: INTERVERTEBRAL DISC PROTRUSION
     Dosage: MODIFIED-RELEASE TABLET
     Dates: start: 201301
  2. KETOPROFEN [Suspect]
     Indication: ANXIETY
     Dosage: GASTRO-RESISTANT TABLET
     Dates: start: 201301
  3. PARACETAMOL [Concomitant]
     Indication: PAIN
     Dates: start: 20130511
  4. OMEPRAZOLE [Concomitant]
     Dosage: CACHET
  5. ZIMOVANE [Concomitant]

REACTIONS (4)
  - Anxiety [Not Recovered/Not Resolved]
  - Headache [Not Recovered/Not Resolved]
  - Neck pain [Not Recovered/Not Resolved]
  - Pain in extremity [Not Recovered/Not Resolved]
